FAERS Safety Report 9002818 (Version 3)
Quarter: 2013Q2

REPORT INFORMATION
  Report Type: Spontaneous
  Country: US (occurrence: US)
  Receive Date: 20130107
  Receipt Date: 20130621
  Transmission Date: 20140414
  Serious: Yes (Hospitalization, Other)
  Sender: FDA-Public Use
  Company Number: US-009507513-1202USA03886

PATIENT
  Sex: Female

DRUGS (3)
  1. FOSAMAX [Suspect]
     Indication: OSTEOPOROSIS
     Dosage: 10 MG, UNK
     Route: 048
     Dates: start: 1998
  2. FOSAMAX [Suspect]
     Dosage: 70 MG, UNK
     Route: 048
  3. ALENDRONATE SODIUM [Suspect]
     Indication: OSTEOPOROSIS
     Dosage: 70 MG, UNK
     Route: 048
     Dates: start: 20080313, end: 201011

REACTIONS (14)
  - Intramedullary rod insertion [Unknown]
  - Femur fracture [Unknown]
  - Intramedullary rod insertion [Unknown]
  - Mastectomy [Unknown]
  - Femur fracture [Unknown]
  - Low turnover osteopathy [Unknown]
  - Foot fracture [Unknown]
  - Foot fracture [Unknown]
  - Endodontic procedure [Unknown]
  - Hypertension [Unknown]
  - Fall [Unknown]
  - Oestrogen deficiency [Unknown]
  - Osteoarthritis [Unknown]
  - Bone loss [Unknown]
